FAERS Safety Report 7359825-5 (Version None)
Quarter: 2011Q1

REPORT INFORMATION
  Report Type: 
  Country: None (occurrence: None)
  Receive Date: 20110317
  Receipt Date: 20110218
  Transmission Date: 20110831
  Serious: No
  Sender: FDA-Public Use
  Company Number: US-B.I. PHARMACEUTICALS,INC./RIDGEFIELD-2011-BP-06206BP

PATIENT
  Sex: Male

DRUGS (13)
  1. RAMIPRIL [Concomitant]
     Dosage: 20 MG
     Route: 048
  2. NIACIN [Concomitant]
     Route: 048
  3. ACEBUTOLOL [Concomitant]
     Dosage: 200 MG
     Route: 048
  4. AMLODIPINE [Concomitant]
     Dosage: 5 MG
     Route: 048
  5. PRADAXA [Suspect]
     Indication: ATRIAL FIBRILLATION
     Dosage: 300 MG
     Route: 048
     Dates: start: 20110115
  6. MAGNESIUM [Concomitant]
     Route: 048
  7. COMPAZINE [Concomitant]
     Dosage: 250 MG
     Route: 048
  8. LIPITOR [Concomitant]
     Dosage: 20 MG
     Route: 048
  9. CYCLOBENZAPRINE [Concomitant]
     Indication: BACK DISORDER
     Dosage: 30 MG
     Route: 048
  10. QUININE [Concomitant]
     Indication: MUSCLE SPASMS
     Route: 048
  11. AMIODARONE [Concomitant]
     Route: 048
     Dates: start: 20110115
  12. TESIM [Concomitant]
     Route: 061
  13. VITAMIN D [Concomitant]
     Route: 048

REACTIONS (1)
  - ASTHENIA [None]
